FAERS Safety Report 13768895 (Version 2)
Quarter: 2017Q3

REPORT INFORMATION
  Report Type: Report from Study
  Country: FR (occurrence: FR)
  Receive Date: 20170719
  Receipt Date: 20170813
  Transmission Date: 20171127
  Serious: Yes (Hospitalization, Other)
  Sender: FDA-Public Use
  Company Number: FR-BRISTOL-MYERS SQUIBB COMPANY-BMS-2017-063408

PATIENT
  Age: 65 Year
  Sex: Female
  Weight: 70 kg

DRUGS (1)
  1. ENTECAVIR. [Suspect]
     Active Substance: ENTECAVIR
     Indication: CHRONIC HEPATITIS B
     Dosage: 0.5 MG, QD
     Route: 065
     Dates: start: 20110322

REACTIONS (6)
  - Lung disorder [Recovered/Resolved]
  - High frequency ablation [Unknown]
  - Atrial fibrillation [Recovered/Resolved]
  - Hyperthermia [Unknown]
  - Tachycardia [Unknown]
  - Palpitations [Unknown]

NARRATIVE: CASE EVENT DATE: 20151208
